FAERS Safety Report 8200619-6 (Version None)
Quarter: 2012Q1

REPORT INFORMATION
  Report Type: 
  Country: None (occurrence: None)
  Receive Date: 20120223
  Receipt Date: 20120214
  Transmission Date: 20120608
  Serious: Yes (Hospitalization, Other)
  Sender: FDA-Public Use
  Company Number: 2012031163

PATIENT
  Age: 65 Year
  Sex: Female
  Weight: 67.1324 kg

DRUGS (23)
  1. HIZENTRA [Suspect]
     Indication: IMMUNODEFICIENCY COMMON VARIABLE
     Dosage: (8 G 1X/WEEK, 4 GM 20 ML VIAL; 40 ML IN 4 SITES	OVER 1-2 HOURS SUBCUTANEOUS), (4 GM 20 ML SUBCUTANEO
     Route: 058
     Dates: start: 20110210
  2. HIZENTRA [Suspect]
     Indication: IMMUNODEFICIENCY COMMON VARIABLE
     Dosage: (8 G 1X/WEEK, 4 GM 20 ML VIAL; 40 ML IN 4 SITES	OVER 1-2 HOURS SUBCUTANEOUS), (4 GM 20 ML SUBCUTANEO
     Route: 058
     Dates: start: 20110210
  3. PATANOL [Concomitant]
  4. FOLCAPS (VITAMINS) [Concomitant]
  5. CARTIA XT [Concomitant]
  6. AMERGE [Concomitant]
  7. VITAMIN E [Concomitant]
  8. ENTOCORT EC [Concomitant]
  9. ASPIRIN [Concomitant]
  10. TEVETEN [Concomitant]
  11. DUONEB (COMBIVENT /01261001/) [Concomitant]
  12. ESTRING [Concomitant]
  13. SPIRONOLACTONE (SPIRONOLACTONE) [Concomitant]
  14. LEXAPRO (ESCITALOPRAM OXALATE) [Concomitant]
  15. FLUTICASONE (FLUTICASONE) [Concomitant]
  16. XOPENEX [Concomitant]
  17. FLUOXETINE [Concomitant]
  18. FAMOTIDINE [Concomitant]
  19. PULMICORT (BUDESONIDE) [Concomitant]
  20. MULTIVITAMIN (ACCOMIN MULTIVITAMIN) [Concomitant]
  21. IMMUNE GLOBULIN (HUMAN) [Suspect]
  22. SEREVENT [Concomitant]
  23. FOLIC ACID [Concomitant]

REACTIONS (4)
  - CLOSTRIDIAL INFECTION [None]
  - FEELING HOT [None]
  - PRODUCTIVE COUGH [None]
  - LUNG INFECTION [None]
